FAERS Safety Report 6746823-5 (Version None)
Quarter: 2010Q2

REPORT INFORMATION
  Report Type: 
  Country: None (occurrence: None)
  Receive Date: 20100528
  Receipt Date: 20100305
  Transmission Date: 20101027
  Serious: No
  Sender: FDA-Public Use
  Company Number: A0840520A

PATIENT
  Sex: Female

DRUGS (2)
  1. VENTOLIN [Suspect]
     Indication: ASTHMA
     Route: 055
     Dates: start: 20090901
  2. DUONEB [Concomitant]

REACTIONS (2)
  - PALPITATIONS [None]
  - PRODUCT QUALITY ISSUE [None]
